FAERS Safety Report 13119936 (Version 1)
Quarter: 2017Q1

REPORT INFORMATION
  Report Type: Spontaneous
  Country: TR (occurrence: TR)
  Receive Date: 20170117
  Receipt Date: 20170117
  Transmission Date: 20170428
  Serious: Yes (Death, Other)
  Sender: FDA-Public Use
  Company Number: TR-BRISTOL-MYERS SQUIBB COMPANY-BMS-2017-002549

PATIENT
  Sex: Male
  Weight: 75 kg

DRUGS (1)
  1. IPILIMUMAB [Suspect]
     Active Substance: IPILIMUMAB
     Indication: MALIGNANT MELANOMA
     Dosage: UNK
     Route: 065
     Dates: start: 20160801

REACTIONS (1)
  - Death [Fatal]
